FAERS Safety Report 7815438-X (Version None)
Quarter: 2011Q4

REPORT INFORMATION
  Report Type: 
  Country: None (occurrence: None)
  Receive Date: 20111005
  Receipt Date: 20111003
  Transmission Date: 20120403
  Serious: Yes (Other)
  Sender: FDA-Public Use
  Company Number: 2011028859

PATIENT
  Age: 63 Year
  Sex: Female
  Weight: 92.5338 kg

DRUGS (32)
  1. HIZENTRA [Suspect]
     Indication: HYPOGAMMAGLOBULINAEMIA
     Dosage: SEE IMAGE SUBCUTANEOUS
     Route: 058
     Dates: start: 20010531
  2. HIZENTRA [Suspect]
     Indication: HYPOGAMMAGLOBULINAEMIA
     Dosage: SEE IMAGE SUBCUTANEOUS
     Route: 058
     Dates: start: 20110725
  3. HIZENTRA [Suspect]
     Indication: HYPOGAMMAGLOBULINAEMIA
     Dosage: SEE IMAGE SUBCUTANEOUS
     Route: 058
     Dates: start: 20110426
  4. HIZENTRA [Suspect]
     Indication: HYPOGAMMAGLOBULINAEMIA
     Dosage: SEE IMAGE SUBCUTANEOUS
     Route: 058
     Dates: start: 20110913
  5. PREDNISONE TAB [Concomitant]
  6. NEXIUM [Concomitant]
  7. LIPITOR [Concomitant]
  8. LEVOTHYROXINE SODIUM [Concomitant]
  9. FOSAMAX [Concomitant]
  10. THEOPHYLLINE [Concomitant]
  11. CLARITIN [Concomitant]
  12. CALTRATE (CALCIUM CARBONATE) [Concomitant]
  13. CELEXA [Concomitant]
  14. POTASSIUM CHLORDE (POTASSIUM CHLORIDE) [Concomitant]
  15. MELOXICAM [Concomitant]
  16. HIZENTRA [Suspect]
  17. PROVENTIL [Concomitant]
  18. LORCET-HD [Concomitant]
  19. SPIRIVA [Concomitant]
  20. ASPIRIN [Concomitant]
  21. IPRATROPIUM BROMIDE [Concomitant]
  22. FUROSEMIDE [Concomitant]
  23. LISINOPRIL [Concomitant]
  24. FLONASE [Concomitant]
  25. ANTIVERT [Concomitant]
  26. SINGULAIR [Concomitant]
  27. HIZENTRA [Suspect]
  28. ADVAIR HFA [Concomitant]
  29. ULTRACET (ULTRACET) [Concomitant]
  30. VESICARE [Concomitant]
  31. FOLIC ACID [Concomitant]
  32. MOTRIN [Concomitant]

REACTIONS (3)
  - KIDNEY INFECTION [None]
  - PRURITUS GENERALISED [None]
  - LUNG INFECTION [None]
